FAERS Safety Report 6155524-6 (Version None)
Quarter: 2009Q2

REPORT INFORMATION
  Report Type: 
  Country: None (occurrence: None)
  Receive Date: 20090415
  Receipt Date: 20090402
  Transmission Date: 20091009
  Serious: Yes (Death)
  Sender: FDA-Public Use
  Company Number: US-PFIZER INC-2009194494

PATIENT
  Age: 52 Year
  Sex: Male
  Weight: 137.42 kg

DRUGS (15)
  1. ATENOLOL [Suspect]
     Indication: HYPERTENSION
     Dosage: 25 MG, DAILY
     Route: 048
  2. METHOTREXATE SODIUM [Suspect]
     Dosage: 2.5 MG, 3 TABS WEEKLY
     Route: 065
  3. HYDROXYZINE HCL [Suspect]
     Route: 065
  4. LISINOPRIL AND HYDROCHLOROTHIAZIDE [Suspect]
     Indication: HYPERTENSION
     Dosage: 20 MG, 1 TABLET DAILY
     Route: 048
  5. LISINOPRIL AND HYDROCHLOROTHIAZIDE [Suspect]
     Dosage: 12.5 MG, 1 TABLET DAILY
     Route: 048
  6. SEROQUEL [Suspect]
     Dosage: 200 MG, 1X/DAY
     Route: 048
  7. OXYMORPHONE HYDROCHLORIDE [Suspect]
     Dosage: 30 MG, 2X/DAY
     Route: 048
  8. FLUOXETINE [Suspect]
     Indication: DEPRESSION
     Dosage: 40 MG, UNK
     Route: 065
  9. LUNESTA [Suspect]
     Indication: SLEEP DISORDER
     Dosage: 3 MG, HS
     Route: 048
  10. CARISOPRODOL [Suspect]
     Dosage: 350 MG, 1 TAB 3X/DAY
     Route: 048
  11. FORADIL [Suspect]
     Dosage: 1 DOSE, 2X/DAY
     Route: 055
  12. PEGINTERFERON ALFA-2A [Suspect]
     Route: 065
  13. REQUIP [Suspect]
     Route: 065
  14. AMITRIPTYLINE HCL [Suspect]
     Route: 065
  15. NABUMETONE [Suspect]
     Route: 065

REACTIONS (1)
  - DEATH [None]
